FAERS Safety Report 8199497-3 (Version None)
Quarter: 2012Q1

REPORT INFORMATION
  Report Type: 
  Country: None (occurrence: None)
  Receive Date: 20120309
  Receipt Date: 20120302
  Transmission Date: 20120608
  Serious: Yes (Other)
  Sender: FDA-Public Use
  Company Number: JP-VERTEX PHARMACEUTICALS INC.-AE-2012-003277

PATIENT
  Age: 58 Year
  Sex: Male

DRUGS (8)
  1. ALLOPURINOL [Concomitant]
     Route: 048
  2. MUCOSTA [Concomitant]
     Route: 048
  3. LOXONIN [Concomitant]
  4. AMOBAN [Concomitant]
     Route: 048
  5. REBETOL [Concomitant]
     Indication: HEPATITIS C
     Route: 048
     Dates: start: 20120227
  6. TELAVIC (TELAPREVIR) [Suspect]
     Indication: HEPATITIS C
     Route: 048
     Dates: start: 20120227, end: 20120301
  7. PEGINTERFERON ALFA-2B [Concomitant]
     Indication: HEPATITIS C
     Dates: start: 20120227
  8. URSO 250 [Concomitant]
     Route: 048

REACTIONS (4)
  - PYREXIA [None]
  - NAUSEA [None]
  - VOMITING [None]
  - ERYTHEMA [None]
